FAERS Safety Report 7996246-6 (Version None)
Quarter: 2011Q4

REPORT INFORMATION
  Report Type: 
  Country: None (occurrence: None)
  Receive Date: 20111220
  Receipt Date: 20111205
  Transmission Date: 20120403
  Serious: Yes (Hospitalization, Other)
  Sender: FDA-Public Use
  Company Number: DE-ALLERGAN-1115869US

PATIENT
  Age: 64 Year
  Sex: Male

DRUGS (1)
  1. OZURDEX [Suspect]
     Indication: MACULAR OEDEMA
     Dosage: UNK
     Dates: start: 20111128, end: 20111128

REACTIONS (1)
  - ENDOPHTHALMITIS [None]
